FAERS Safety Report 8313171-1 (Version None)
Quarter: 2012Q2

REPORT INFORMATION
  Report Type: 
  Country: None (occurrence: None)
  Receive Date: 20120424
  Receipt Date: 20120410
  Transmission Date: 20120825
  Serious: No
  Sender: FDA-Public Use
  Company Number: 2012-00629

PATIENT
  Age: 76 Year
  Sex: Female
  Weight: 55 kg

DRUGS (7)
  1. LANSOPRAZOLE [Concomitant]
  2. FRUSEMIDE (FUROSEMIDE) [Concomitant]
  3. FLUTICASONE PROPIONATE MICRONISED + SALMETEROL XINAFOATE MICRONISED (S [Concomitant]
  4. ASPIRIN [Concomitant]
  5. TIOTROPIUM BROMIDE+ TIOTROPIUM BROMIDE MONOHYDRATE (SPIRIVA) [Concomitant]
  6. SIMVASTATIN [Suspect]
     Indication: PRODUCT USED FOR UNKNOWN INDICATION
     Dosage: 20 MG (20 MG, 1 IN 1 D),ORAL
     Route: 048
     Dates: end: 20120305
  7. CIPROFLOXACIN(UNKNOWN) [Suspect]
     Indication: LIVER ABSCESS
     Dosage: 1500 MG (750 MG,2 IN 1 D), ORAL
     Route: 048
     Dates: start: 20120216, end: 20120305

REACTIONS (2)
  - RENAL FAILURE ACUTE [None]
  - DEHYDRATION [None]
